FAERS Safety Report 13285336 (Version 1)
Quarter: 2017Q1

REPORT INFORMATION
  Report Type: Spontaneous
  Country: US (occurrence: US)
  Receive Date: 20170301
  Receipt Date: 20170301
  Transmission Date: 20170428
  Serious: Yes (Other)
  Sender: FDA-Public Use
  Company Number: None

PATIENT
  Age: 73 Year
  Sex: Female

DRUGS (5)
  1. LETAIRIS [Suspect]
     Active Substance: AMBRISENTAN
     Indication: PULMONARY ARTERIAL HYPERTENSION
     Dates: start: 201611, end: 201702
  2. ALBUTEROL. [Concomitant]
     Active Substance: ALBUTEROL
  3. SILDENAFIL. [Concomitant]
     Active Substance: SILDENAFIL
  4. LORAZEPAM. [Concomitant]
     Active Substance: LORAZEPAM
  5. FUROSEMIDE. [Concomitant]
     Active Substance: FUROSEMIDE

REACTIONS (2)
  - Fatigue [None]
  - Therapy change [None]

NARRATIVE: CASE EVENT DATE: 20170301
